FAERS Safety Report 9338121 (Version 3)
Quarter: 2013Q3

REPORT INFORMATION
  Report Type: Spontaneous
  Country: US (occurrence: US)
  Receive Date: 20130610
  Receipt Date: 20130813
  Transmission Date: 20140515
  Serious: Yes (Other)
  Sender: FDA-Public Use
  Company Number: US-AMGEN-USASP2013039745

PATIENT
  Age: 67 Year
  Sex: Male
  Weight: 106 kg

DRUGS (12)
  1. NPLATE [Suspect]
     Indication: IMMUNE THROMBOCYTOPENIC PURPURA
     Route: 065
  2. NPLATE [Suspect]
     Route: 065
  3. NPLATE [Suspect]
     Route: 065
  4. NPLATE [Suspect]
     Route: 065
  5. ACETAMINOPHEN [Concomitant]
  6. VITAMIN D                          /00107901/ [Concomitant]
  7. DILTIAZEM [Concomitant]
  8. METOPROLOL [Concomitant]
  9. PRAVASTATIN [Concomitant]
  10. WARFARIN [Concomitant]
  11. CIALIS [Concomitant]
  12. VITAMIN D [Concomitant]

REACTIONS (2)
  - Therapeutic response decreased [Unknown]
  - Platelet count abnormal [Unknown]
